FAERS Safety Report 7513298-8 (Version None)
Quarter: 2011Q2

REPORT INFORMATION
  Report Type: 
  Country: None (occurrence: None)
  Receive Date: 20110531
  Receipt Date: 20110525
  Transmission Date: 20111010
  Serious: Yes (Death)
  Sender: FDA-Public Use
  Company Number: AU-ASTRAZENECA-2011SE28167

PATIENT
  Age: 82 Year
  Sex: Female
  Weight: 53 kg

DRUGS (10)
  1. FUROSEMIDE [Suspect]
     Indication: CARDIAC FAILURE CHRONIC
     Route: 048
  2. OTHERS [Concomitant]
  3. SEROQUEL XR [Suspect]
     Indication: BIPOLAR DISORDER
     Route: 048
     Dates: start: 20101201
  4. MIRTAZAPINE [Concomitant]
  5. AMIODARONE HCL [Suspect]
     Indication: MYOCARDIAL ISCHAEMIA
     Route: 048
  6. WARFARIN SODIUM [Concomitant]
     Indication: SURGERY
  7. MIRTAZAPINE [Suspect]
     Indication: BIPOLAR DISORDER
     Route: 048
     Dates: start: 20101201
  8. OXYCODONE HCL [Concomitant]
  9. CYMBALTA [Suspect]
     Indication: BIPOLAR DISORDER
     Route: 048
     Dates: start: 20101201
  10. OXYCONTIN [Concomitant]
     Indication: PAIN

REACTIONS (2)
  - CHEST PAIN [None]
  - CARDIAC DISORDER [None]
